FAERS Safety Report 11880497 (Version 2)
Quarter: 2016Q1

REPORT INFORMATION
  Report Type: Spontaneous
  Country: US (occurrence: US)
  Receive Date: 20151230
  Receipt Date: 20160106
  Transmission Date: 20160526
  Serious: Yes (Hospitalization)
  Sender: FDA-Public Use
  Company Number: US-FRI-1000081875

PATIENT
  Age: 84 Year
  Sex: Male

DRUGS (5)
  1. ESCITALOPRAM [Suspect]
     Active Substance: ESCITALOPRAM OXALATE
     Indication: DEPRESSION
     Dosage: 10MG
     Route: 048
     Dates: start: 20151211, end: 20151217
  2. LASIX [Concomitant]
     Active Substance: FUROSEMIDE
  3. PLAVIX [Concomitant]
     Active Substance: CLOPIDOGREL BISULFATE
  4. WELCHOL [Concomitant]
     Active Substance: COLESEVELAM HYDROCHLORIDE
  5. ZETIA [Concomitant]
     Active Substance: EZETIMIBE

REACTIONS (6)
  - Feeling abnormal [Recovering/Resolving]
  - Transient ischaemic attack [Unknown]
  - Confusional state [Recovering/Resolving]
  - Seizure [Recovered/Resolved]
  - Blood sodium decreased [Recovering/Resolving]
  - Fall [Recovered/Resolved]

NARRATIVE: CASE EVENT DATE: 20151211
